FAERS Safety Report 17337384 (Version 2)
Quarter: 2020Q2

REPORT INFORMATION
  Report Type: Spontaneous
  Country: US (occurrence: US)
  Receive Date: 20200129
  Receipt Date: 20200625
  Transmission Date: 20200713
  Serious: No
  Sender: FDA-Public Use
  Company Number: NVSC2020US020509

PATIENT
  Sex: Female

DRUGS (2)
  1. GLEEVEC [Suspect]
     Active Substance: IMATINIB MESYLATE
     Indication: PHILADELPHIA CHROMOSOME POSITIVE
  2. GLEEVEC [Suspect]
     Active Substance: IMATINIB MESYLATE
     Indication: CHRONIC MYELOID LEUKAEMIA
     Dosage: UNK
     Route: 065

REACTIONS (4)
  - Drug ineffective [Recovered/Resolved]
  - Platelet count decreased [Unknown]
  - Dry skin [Unknown]
  - Gingival bleeding [Unknown]
